FAERS Safety Report 9735009 (Version 2)
Quarter: 2013Q4

REPORT INFORMATION
  Report Type: Report from Study
  Country: CA (occurrence: CA)
  Receive Date: 20131206
  Receipt Date: 20131219
  Transmission Date: 20140711
  Serious: Yes (Hospitalization, Other)
  Sender: FDA-Public Use
  Company Number: CA-ALEXION PHARMACEUTICALS INC.-A201303996

PATIENT
  Age: 28 Year
  Sex: Male
  Weight: 83.9 kg

DRUGS (10)
  1. SOLIRIS [Suspect]
     Indication: PAROXYSMAL NOCTURNAL HAEMOGLOBINURIA
     Dosage: 600 MG, QW
     Route: 042
     Dates: start: 20110805, end: 20110826
  2. SOLIRIS [Suspect]
     Dosage: 900 MG, Q2W
     Route: 042
     Dates: start: 20110902
  3. FOLIC ACID [Concomitant]
     Indication: PAROXYSMAL NOCTURNAL HAEMOGLOBINURIA
     Dosage: 5 MG, QD
     Route: 048
     Dates: start: 20090111
  4. IRON [Concomitant]
     Indication: PAROXYSMAL NOCTURNAL HAEMOGLOBINURIA
     Dosage: QD
     Route: 048
     Dates: start: 20090111
  5. VANCOMYCIN [Concomitant]
     Indication: INFECTION
     Dosage: 1500 MG, TID
     Route: 042
     Dates: start: 20111125, end: 20111202
  6. MORPHINE [Concomitant]
     Indication: ABDOMINAL PAIN
     Dosage: UNK
     Route: 042
     Dates: start: 20120621, end: 20120622
  7. CODEINE [Concomitant]
     Indication: ABDOMINAL PAIN
     Dosage: UNK
     Route: 048
     Dates: start: 20120722, end: 20120730
  8. DILAUDID [Concomitant]
     Dosage: UNK
     Dates: start: 20120727
  9. PREDNISONE [Concomitant]
     Indication: PROPHYLAXIS
     Dosage: 15 MG, QID
     Route: 048
     Dates: start: 20130525
  10. RANITIDIN [Concomitant]
     Indication: DYSPEPSIA
     Dosage: 75 MG, QD
     Route: 048
     Dates: start: 20130525

REACTIONS (6)
  - Haemoglobinuria [Not Recovered/Not Resolved]
  - Abdominal pain [Not Recovered/Not Resolved]
  - Haemoglobin decreased [Unknown]
  - Asthenia [Not Recovered/Not Resolved]
  - Pyrexia [Recovered/Resolved]
  - Jaundice [Not Recovered/Not Resolved]
